FAERS Safety Report 9055186 (Version 4)
Quarter: 2013Q2

REPORT INFORMATION
  Report Type: Spontaneous
  Country: JP (occurrence: JP)
  Receive Date: 20130206
  Receipt Date: 20130418
  Transmission Date: 20140414
  Serious: Yes (Hospitalization)
  Sender: FDA-Public Use
  Company Number: JP-GENZYME-FABR-1003002

PATIENT
  Age: 70 Year
  Sex: Female
  Weight: 53 kg

DRUGS (5)
  1. FABRAZYME [Suspect]
     Indication: FABRY^S DISEASE
     Dosage: 0.94 MG/KG, Q2W
     Route: 042
     Dates: start: 200409
  2. AMIODARONE HYDROCHLORIDE [Suspect]
     Indication: ARRHYTHMIA
     Dosage: 50 MG, BID
     Route: 048
     Dates: start: 20120621, end: 20130117
  3. CARVEDILOL [Concomitant]
     Indication: FABRY^S DISEASE
     Dosage: 10 MG, BID
     Route: 048
     Dates: start: 20080124
  4. THYROID [Concomitant]
     Indication: HYPOTHYROIDISM
     Dosage: 37.5 MCG, QD
     Route: 048
  5. WARFARIN POTASSIUM [Concomitant]
     Indication: FABRY^S DISEASE
     Dosage: 1.25 MG, QD
     Route: 048

REACTIONS (6)
  - Cardiac failure [Not Recovered/Not Resolved]
  - General physical health deterioration [Recovered/Resolved]
  - Urine output decreased [Recovered/Resolved]
  - Nausea [Recovered/Resolved]
  - Dysgeusia [Recovered/Resolved]
  - Dry skin [Recovered/Resolved]
